FAERS Safety Report 7931000-2 (Version None)
Quarter: 2011Q4

REPORT INFORMATION
  Report Type: 
  Country: None (occurrence: None)
  Receive Date: 20111121
  Receipt Date: 20111117
  Transmission Date: 20120403
  Serious: Yes (Congenital Anomaly)
  Sender: FDA-Public Use
  Company Number: AU-GILEAD-2011-0043216

PATIENT
  Sex: Male

DRUGS (1)
  1. TENOFOVIR DISOPROXIL FUMARATE [Suspect]
     Indication: INFECTION PROPHYLAXIS
     Dosage: UNK
     Route: 064
     Dates: start: 20110404, end: 20110522

REACTIONS (1)
  - DEAFNESS UNILATERAL [None]
